FAERS Safety Report 4817195-8 (Version None)
Quarter: 2005Q4

REPORT INFORMATION
  Report Type: 
  Country: None (occurrence: None)
  Receive Date: 20051018
  Receipt Date: 20050202
  Transmission Date: 20060501
  Serious: Yes (Other)
  Sender: FDA-Public Use
  Company Number: PHEH2004US12759

PATIENT
  Sex: Male

DRUGS (14)
  1. ZOMETA [Suspect]
     Indication: MULTIPLE MYELOMA
     Dates: start: 20030226, end: 20040305
  2. PRILOSCE (OMEPRAZOLE) [Concomitant]
  3. ZESTRIL [Concomitant]
  4. ASPIRIN [Concomitant]
  5. ATENOLOL [Concomitant]
  6. CLARITIN [Concomitant]
  7. ZOCOR [Concomitant]
  8. HYDROCHLOROTHIAZIDE [Concomitant]
  9. CUTIVATE (FLUTICASONE PROPIONATE) [Concomitant]
  10. OXYCODONE AND ASPIRIN (ACETYLSALICYLIC ACID, OXYCODONE HYDROCHLORIDE, [Concomitant]
  11. MULTIVITAMINS (ASCORBIC ACID, ERGOCALCIFEROL, FOLIC ACID, NICOTINAMIDE [Concomitant]
  12. CALCIUM W/VITAMIN D NOS (CALCIUM, VITAMIN D NOS) [Concomitant]
  13. METAMUCIL (ISPAGHULA, PLANTAGO OVATA) [Concomitant]
  14. PERIDEX (CHLORHEXIDINE GLUCONATE) [Concomitant]

REACTIONS (2)
  - BLOOD CREATININE ABNORMAL [None]
  - RENAL FAILURE CHRONIC [None]
